FAERS Safety Report 8810193 (Version 1)
Quarter: 2012Q4

REPORT INFORMATION
  Report Type: 
  Country: US (occurrence: US)
  Receive Date: 20120926
  Receipt Date: 20120926
  Transmission Date: 20130627
  Serious: No
  Sender: FDA-Public Use
  Company Number: US-009507513-1209USA006146

PATIENT

DRUGS (2)
  1. SAPHRIS [Suspect]
     Route: 060
  2. TRAZODONE HYDROCHLORIDE [Concomitant]

REACTIONS (2)
  - Swelling face [Unknown]
  - Oedema peripheral [Unknown]
